FAERS Safety Report 23668308 (Version 1)
Quarter: 2024Q1

REPORT INFORMATION
  Report Type: Spontaneous
  Country: DE (occurrence: DE)
  Receive Date: 20240325
  Receipt Date: 20240325
  Transmission Date: 20240409
  Serious: Yes (Congenital Anomaly)
  Sender: FDA-Public Use
  Company Number: DE-EMBRYOTOX-202208859

PATIENT
  Age: 0 Year
  Sex: Male
  Weight: 2.59 kg

DRUGS (10)
  1. AJOVY [Suspect]
     Active Substance: FREMANEZUMAB-VFRM
     Indication: Migraine
     Dosage: 225 [MG/D ]/ THE ONLY INJECTION DURING PREGNANCY, TREATMENT HAD STARTED BEFORE PREGNANCY, OTHER A...
     Route: 064
     Dates: start: 20220810, end: 20220810
  2. IBUPROFEN [Concomitant]
     Active Substance: IBUPROFEN
     Indication: Pain
     Dosage: OTHER ADDITIONAL INFORMATION: TRIMESTER: UNKNOWN TRIMESTER
     Route: 064
  3. LORATADINE [Concomitant]
     Active Substance: LORATADINE
     Indication: Hypersensitivity
     Dosage: TRIMESTER: UNKNOWN TRIMESTER
     Route: 064
  4. SUMATRIPTAN [Concomitant]
     Active Substance: SUMATRIPTAN
     Indication: Migraine
     Dosage: 100 [MG/D ]/ ON DEMAND, OTHER ADDITIONAL INFORMATION:0. - 6.3. GESTATIONAL WEEK, GESTATION EXPOSU...
     Route: 064
     Dates: start: 20220703, end: 20220817
  5. BOOSTRIX [Concomitant]
     Active Substance: TETANUS TOXOID, REDUCED DIPHTHERIA TOXOID AND ACELLULAR PERTUSSIS VACCINE, ADSORBED ANTIGENS
     Indication: Immunisation
     Dosage: OTHER ADDITIONAL INFORMATION : 31.4. - 31.4. GESTATIONAL WEEK, GESTATION EXPOSURE : 3 TRIMESTERS
     Route: 064
     Dates: start: 20230209, end: 20230209
  6. ACETAMINOPHEN [Concomitant]
     Active Substance: ACETAMINOPHEN
     Indication: Pain
     Dosage: OTHER ADDITIONAL INFORMATION :TRIMESTER: UNKNOWN TRIMESTER
     Route: 064
  7. FOLIC ACID [Concomitant]
     Active Substance: FOLIC ACID
     Indication: Prophylaxis of neural tube defect
     Dosage: OTHER ADDITIONAL INFORMATION: TRIMESTER: UNKNOWN TRIMESTER
     Route: 064
  8. ALBUTEROL [Concomitant]
     Active Substance: ALBUTEROL
     Indication: Asthma
     Dosage: OTHER ADDITIONAL INFORMATION:0. - 6.4. GESTATIONAL WEEK, GESTATION EXPOSURE: 1 TRIMESTERS
     Route: 064
     Dates: start: 20220703, end: 20220818
  9. NAPROXEN [Concomitant]
     Active Substance: NAPROXEN
     Indication: Pain
     Dosage: OTHER ADDITIONAL INFORMATION: TRIMESTER: UNKNOWN TRIMESTER
     Route: 064
  10. DOMPERIDONE [Concomitant]
     Active Substance: DOMPERIDONE
     Indication: Morning sickness
     Dosage: OTHER ADDITIONAL INFORMATION :TRIMESTER: UNKNOWN TRIMESTER
     Route: 064

REACTIONS (4)
  - Adactyly [Unknown]
  - Fibula agenesis [Unknown]
  - Ectrodactyly [Unknown]
  - Foetal exposure during pregnancy [Unknown]
